FAERS Safety Report 8684739 (Version 2)
Quarter: 2013Q4

REPORT INFORMATION
  Report Type: Spontaneous
  Country: US (occurrence: US)
  Receive Date: 20120726
  Receipt Date: 20131117
  Transmission Date: 20140711
  Serious: No
  Sender: FDA-Public Use
  Company Number: US-ASTRAZENECA-2011SE42683

PATIENT
  Age: 40 Year
  Sex: Female
  Weight: 67.1 kg

DRUGS (7)
  1. SEROQUEL XR [Suspect]
     Indication: BIPOLAR DISORDER
     Route: 048
  2. SEROQUEL XR [Suspect]
     Indication: BIPOLAR DISORDER
     Route: 048
  3. TEGRETOL [Concomitant]
     Indication: BIPOLAR DISORDER
  4. DIAZEPAM [Concomitant]
  5. LAMICTAL [Concomitant]
     Indication: BIPOLAR DISORDER
  6. LITHIUM [Concomitant]
     Indication: BIPOLAR DISORDER
  7. PROPANOLOL LA [Concomitant]

REACTIONS (3)
  - Mania [Unknown]
  - Tremor [Unknown]
  - Drug dose omission [Unknown]
